FAERS Safety Report 5683005-2 (Version None)
Quarter: 2008Q1

REPORT INFORMATION
  Report Type: 
  Country: None (occurrence: None)
  Receive Date: 20080327
  Receipt Date: 20080321
  Transmission Date: 20080703
  Serious: Yes (Death)
  Sender: FDA-Public Use
  Company Number: ES-SANOFI-SYNTHELABO-F01200800307

PATIENT
  Sex: Male

DRUGS (7)
  1. OMEPRAZOLE MAGNESIUM [Concomitant]
     Indication: PROPHYLAXIS AGAINST GASTROINTESTINAL ULCER
     Dates: start: 20070601
  2. UNSPECIFIED THIAZIDE [Concomitant]
     Indication: HYPERTENSION
     Dates: start: 20070601
  3. ENALAPRIL MALEATE [Concomitant]
     Dates: start: 20070601
  4. METFORMIN [Concomitant]
     Indication: HYPERGLYCAEMIA
     Dates: start: 20070601
  5. ACETYLSALICYLIC ACID SRT [Concomitant]
     Indication: HYPERTENSION
     Dates: start: 20070601
  6. MEGESTROL ACETATE [Concomitant]
     Indication: FLUSHING
     Dates: start: 20071203, end: 20071210
  7. ELIGARD [Suspect]
     Indication: PROSTATE CANCER
     Route: 058
     Dates: start: 20071214, end: 20071214

REACTIONS (1)
  - ISCHAEMIC CARDIOMYOPATHY [None]
